FAERS Safety Report 4977980-9 (Version None)
Quarter: 2006Q2

REPORT INFORMATION
  Report Type: 
  Country: None (occurrence: None)
  Receive Date: 20060420
  Receipt Date: 20060411
  Transmission Date: 20061013
  Serious: Yes (Other)
  Sender: FDA-Public Use
  Company Number: 2006SE02098

PATIENT
  Sex: Male

DRUGS (4)
  1. BLOPRESS [Suspect]
     Route: 048
  2. PABLON S [Suspect]
     Route: 048
  3. SS BRON [Suspect]
     Route: 048
  4. ALOSITOL [Suspect]
     Route: 048

REACTIONS (2)
  - RENAL FAILURE [None]
  - RHABDOMYOLYSIS [None]
